FAERS Safety Report 5612693-1 (Version None)
Quarter: 2008Q1

REPORT INFORMATION
  Report Type: 
  Country: None (occurrence: None)
  Receive Date: 20080204
  Receipt Date: 20080125
  Transmission Date: 20080703
  Serious: Yes (Hospitalization)
  Sender: FDA-Public Use
  Company Number: JP-ASTRAZENECA-2008AP00613

PATIENT
  Age: 74 Year
  Sex: Male

DRUGS (8)
  1. IRESSA [Suspect]
     Indication: LUNG NEOPLASM MALIGNANT
     Route: 048
     Dates: start: 20070907, end: 20080118
  2. OMEPRAL [Concomitant]
     Dosage: UNKNOWN DOSE
     Route: 048
  3. BUP-4 [Concomitant]
     Dosage: UNKNOWN DOSE
     Route: 048
  4. GOODMIN [Concomitant]
     Dosage: UNKNOWN DOSE
     Route: 048
  5. MUCODYNE [Concomitant]
     Dosage: UNKNOWN DOSE
     Route: 048
  6. MAGMITT [Concomitant]
     Dosage: UNKNOWN DOSE
     Route: 048
  7. SYMMETREL [Concomitant]
     Dosage: UNKNOWN DOSE
     Route: 048
  8. CLARITHROMYCIN [Concomitant]
     Dosage: UNKNOWN DOSE
     Route: 048

REACTIONS (1)
  - ILEUS [None]
